FAERS Safety Report 5979348-5 (Version None)
Quarter: 2008Q4

REPORT INFORMATION
  Report Type: 
  Country: None (occurrence: None)
  Receive Date: 20081204
  Receipt Date: 20081125
  Transmission Date: 20090506
  Serious: Yes (Death)
  Sender: FDA-Public Use
  Company Number: GB-ABBOTT-08P-167-0476143-00

PATIENT
  Age: 31 Year
  Sex: Female

DRUGS (8)
  1. VALPROATE SODIUM [Suspect]
     Indication: DRUG USE FOR UNKNOWN INDICATION
     Dates: end: 20080607
  2. AMITRIPTYLINE HCL [Suspect]
     Indication: DRUG USE FOR UNKNOWN INDICATION
  3. BUSPIRONE HCL [Suspect]
     Indication: DRUG USE FOR UNKNOWN INDICATION
  4. DIAZEPAM [Suspect]
     Indication: DRUG USE FOR UNKNOWN INDICATION
  5. INSULIN LISPRO [Suspect]
     Indication: DRUG USE FOR UNKNOWN INDICATION
  6. INSULIN DETEMIR [Suspect]
     Indication: DRUG USE FOR UNKNOWN INDICATION
  7. PREGABALIN [Suspect]
     Indication: DRUG USE FOR UNKNOWN INDICATION
  8. QUETIAPINE FUMARATE [Suspect]
     Indication: DRUG USE FOR UNKNOWN INDICATION

REACTIONS (4)
  - DIABETES MELLITUS INADEQUATE CONTROL [None]
  - GENERALISED ANXIETY DISORDER [None]
  - PANIC ATTACK [None]
  - SUDDEN CARDIAC DEATH [None]
